FAERS Safety Report 9753723 (Version 1)
Quarter: 2013Q4

REPORT INFORMATION
  Report Type: Spontaneous
  Country: US (occurrence: US)
  Receive Date: 20131213
  Receipt Date: 20131213
  Transmission Date: 20140711
  Serious: No
  Sender: FDA-Public Use
  Company Number: US-GILEAD-2010-0026596

PATIENT
  Sex: Female
  Weight: 124.28 kg

DRUGS (11)
  1. LETAIRIS [Suspect]
     Indication: PULMONARY ARTERIAL HYPERTENSION
     Route: 048
     Dates: start: 20090423
  2. HCTZ [Concomitant]
  3. PRINIVIL [Concomitant]
  4. CLONIDINE [Concomitant]
  5. NORVASC [Concomitant]
  6. HYDROMORPHONE HCL [Concomitant]
  7. GABAPENTIN [Concomitant]
  8. PLAQUENIL [Concomitant]
  9. AMRIX [Concomitant]
  10. PREDNISONE [Concomitant]
  11. CENTRUM SILVER [Concomitant]

REACTIONS (1)
  - Dyspnoea [Unknown]
